FAERS Safety Report 8187656-5 (Version None)
Quarter: 2012Q1

REPORT INFORMATION
  Report Type: 
  Country: None (occurrence: None)
  Receive Date: 20120306
  Receipt Date: 20120302
  Transmission Date: 20120608
  Serious: Yes (Other)
  Sender: FDA-Public Use
  Company Number: US-PFIZER INC-2012017456

PATIENT
  Sex: Female
  Weight: 54.42 kg

DRUGS (2)
  1. AVINZA [Suspect]
     Indication: POSTOPERATIVE CARE
     Dosage: 90 MG, 2X/DAY
     Route: 048
  2. SOMA [Concomitant]
     Indication: MUSCLE RELAXANT THERAPY
     Dosage: UNK

REACTIONS (7)
  - SPINAL OPERATION [None]
  - PAIN [None]
  - PIRIFORMIS SYNDROME [None]
  - ARTHRITIS [None]
  - TUMOUR MARKER INCREASED [None]
  - BREAST PAIN [None]
  - BLOOD POTASSIUM DECREASED [None]
